FAERS Safety Report 6824080-9 (Version None)
Quarter: 2010Q3

REPORT INFORMATION
  Report Type: 
  Country: None (occurrence: None)
  Receive Date: 20100708
  Receipt Date: 20061006
  Transmission Date: 20110219
  Serious: Yes (Other)
  Sender: FDA-Public Use
  Company Number: US-PFIZER INC-2006123949

PATIENT
  Age: 53 Year
  Sex: Female

DRUGS (8)
  1. CHANTIX [Suspect]
     Indication: EX-TOBACCO USER
  2. TEGRETOL [Concomitant]
  3. HYDROCODONE BITARTRATE [Concomitant]
  4. LIPITOR [Concomitant]
  5. PLAVIX [Concomitant]
  6. ZOLOFT [Concomitant]
  7. PREMPRO [Concomitant]
  8. FOSAMAX [Concomitant]

REACTIONS (1)
  - CONVULSION [None]
